FAERS Safety Report 4332191-5 (Version None)
Quarter: 2004Q1

REPORT INFORMATION
  Report Type: 
  Country: None (occurrence: None)
  Receive Date: 20040329
  Receipt Date: 20031230
  Transmission Date: 20041129
  Serious: Yes (Hospitalization, Other)
  Sender: FDA-Public Use
  Company Number: 2003003463

PATIENT
  Age: 54 Year
  Sex: Male

DRUGS (18)
  1. LOPID [Suspect]
     Indication: HYPERLIPIDAEMIA
     Dosage: 1200 MG (BID), ORAL
     Route: 048
     Dates: end: 20010328
  2. CERIVASTATIN (CERIVASTATIN) [Suspect]
     Indication: HYPERLIPIDAEMIA
     Dosage: 0.8 MG (DAILY)
     Dates: start: 20010303, end: 20010328
  3. PRAVASTATIN SODIUM [Suspect]
     Indication: HYPERLIPIDAEMIA
  4. ACETYLSALICYLIC ACID SRT [Concomitant]
  5. ATENOLOL [Concomitant]
  6. ROSIGLITAZONE MALEATE [Concomitant]
  7. QUINAPRIL HCL [Concomitant]
  8. METFORMIN HCL [Concomitant]
  9. GLIPIZIDE [Concomitant]
  10. INSULIN [Concomitant]
  11. SIMVASTATIN [Concomitant]
  12. VERAPAMIL HCL [Concomitant]
  13. NITROGLYCERIN [Concomitant]
  14. NITROGLYCERIN [Concomitant]
  15. GEMFIBROZIL [Concomitant]
  16. INSULIN GLARGINE (INSULIN GLARGINE) [Concomitant]
  17. FENOFIBRATE [Concomitant]
  18. INSULIN HUMAN INJECTION, ISOPHANE (INSULIN HUMAN INJECTION, ISOPHANE) [Concomitant]

REACTIONS (102)
  - ABASIA [None]
  - ABDOMINAL DISCOMFORT [None]
  - ABNORMAL CHEST SOUND [None]
  - ANGINA PECTORIS [None]
  - ANGINA UNSTABLE [None]
  - ANXIETY [None]
  - ARTHRALGIA [None]
  - ARTHROPATHY [None]
  - ATRIAL FIBRILLATION [None]
  - BENIGN PROSTATIC HYPERPLASIA [None]
  - BLOOD ALBUMIN DECREASED [None]
  - BLOOD POTASSIUM DECREASED [None]
  - BLOOD POTASSIUM INCREASED [None]
  - BLOOD PRESSURE DECREASED [None]
  - BLOOD PRESSURE INCREASED [None]
  - BLOOD TRIGLYCERIDES INCREASED [None]
  - BLOOD URIC ACID INCREASED [None]
  - BODY TEMPERATURE INCREASED [None]
  - BUNDLE BRANCH BLOCK RIGHT [None]
  - CARDIOACTIVE DRUG LEVEL DECREASED [None]
  - CATHETER RELATED COMPLICATION [None]
  - CEREBRAL ATROPHY [None]
  - CHILLS [None]
  - CHROMATURIA [None]
  - COMPUTERISED TOMOGRAM ABNORMAL [None]
  - CONSTIPATION [None]
  - CONTUSION [None]
  - CORONARY ARTERY DISEASE [None]
  - COUGH [None]
  - CYSTITIS [None]
  - DEPRESSION [None]
  - DERMAL CYST [None]
  - DERMATITIS [None]
  - DIABETES MELLITUS INADEQUATE CONTROL [None]
  - DISCOMFORT [None]
  - DIZZINESS [None]
  - DRUG INTERACTION [None]
  - DRUG LEVEL INCREASED [None]
  - DYSURIA [None]
  - ECCHYMOSIS [None]
  - EOSINOPHIL COUNT INCREASED [None]
  - EPISTAXIS [None]
  - EXCORIATION [None]
  - EXOSTOSIS [None]
  - EYE INFECTION [None]
  - GOITRE [None]
  - HAEMATOCRIT DECREASED [None]
  - HAEMATOMA [None]
  - HAEMOGLOBIN DECREASED [None]
  - HEADACHE [None]
  - HEART RATE INCREASED [None]
  - HEART RATE IRREGULAR [None]
  - HEPATOMEGALY [None]
  - HYPERHIDROSIS [None]
  - HYPOACUSIS [None]
  - HYPOAESTHESIA [None]
  - INJURY [None]
  - INSULIN RESISTANCE SYNDROME [None]
  - JOINT RANGE OF MOTION DECREASED [None]
  - LOCALISED INFECTION [None]
  - METABOLIC SYNDROME [None]
  - MITRAL VALVE INCOMPETENCE [None]
  - MONOCYTE COUNT INCREASED [None]
  - MOVEMENT DISORDER [None]
  - MYALGIA [None]
  - MYOCARDIAL INFARCTION [None]
  - MYOSITIS [None]
  - NASAL CONGESTION [None]
  - NAUSEA [None]
  - NECK PAIN [None]
  - NODULE [None]
  - ODYNOPHAGIA [None]
  - OEDEMA PERIPHERAL [None]
  - PAIN [None]
  - PAIN IN EXTREMITY [None]
  - PALPITATIONS [None]
  - PARAESTHESIA [None]
  - PCO2 DECREASED [None]
  - PHARYNGOLARYNGEAL PAIN [None]
  - POST PROCEDURAL PAIN [None]
  - PROTEIN TOTAL DECREASED [None]
  - PSORIASIS [None]
  - RADICULOPATHY [None]
  - RASH [None]
  - RED BLOOD CELL COUNT DECREASED [None]
  - RED BLOOD CELL SEDIMENTATION RATE INCREASED [None]
  - RESPIRATORY TRACT CONGESTION [None]
  - RHABDOMYOLYSIS [None]
  - RHINORRHOEA [None]
  - SCIATICA [None]
  - SCRATCH [None]
  - SENSATION OF PRESSURE IN EAR [None]
  - SINUS TACHYCARDIA [None]
  - SLEEP APNOEA SYNDROME [None]
  - SUPRAVENTRICULAR TACHYCARDIA [None]
  - SWELLING [None]
  - URETHRAL INJURY [None]
  - URETHRAL STRICTURE [None]
  - URINARY RETENTION [None]
  - URINARY TRACT INFECTION [None]
  - VOMITING [None]
  - WHEEZING [None]
